FAERS Safety Report 10187779 (Version 1)
Quarter: 2014Q2

REPORT INFORMATION
  Report Type: Spontaneous
  Country: US (occurrence: US)
  Receive Date: 20140522
  Receipt Date: 20140522
  Transmission Date: 20141212
  Serious: No
  Sender: FDA-Public Use
  Company Number: US-SANOFI-AVENTIS-2013SA087839

PATIENT
  Age: 69 Year
  Sex: Female

DRUGS (3)
  1. LANTUS SOLOSTAR [Suspect]
     Indication: TYPE 2 DIABETES MELLITUS
     Dosage: 2-3 YEARS DOSE:36 UNIT(S)
     Route: 051
  2. HUMALOG [Suspect]
     Dosage: 9 UNITS WITH BREAKFAST AND LUNCH AND 15 UNITS WITH SUPPER
     Route: 065
  3. METFORMIN [Suspect]
     Route: 065

REACTIONS (3)
  - Movement disorder [Unknown]
  - Blood glucose decreased [Unknown]
  - Injection site pain [Unknown]
